FAERS Safety Report 5366854-X (Version None)
Quarter: 2007Q2

REPORT INFORMATION
  Report Type: 
  Country: None (occurrence: None)
  Receive Date: 20070622
  Receipt Date: 20061205
  Transmission Date: 20071010
  Serious: No
  Sender: FDA-Public Use
  Company Number: US-ASTRAZENECA-2006UW27068

PATIENT
  Age: 39 Year
  Sex: Female
  Weight: 58.1 kg

DRUGS (2)
  1. RHINOCORT [Suspect]
     Indication: NASAL OEDEMA
     Dosage: TWO SPRAYS EACH NOSTRIL
     Route: 045
  2. RHINOCORT [Suspect]
     Indication: MIDDLE EAR EFFUSION
     Dosage: TWO SPRAYS EACH NOSTRIL
     Route: 045

REACTIONS (3)
  - DYSARTHRIA [None]
  - FLUSHING [None]
  - SINUS HEADACHE [None]
